FAERS Safety Report 7368334-9 (Version None)
Quarter: 2011Q1

REPORT INFORMATION
  Report Type: 
  Country: None (occurrence: None)
  Receive Date: 20110311
  Receipt Date: 20110223
  Transmission Date: 20110831
  Serious: Yes (Hospitalization)
  Sender: FDA-Public Use
  Company Number: CRC-11-049

PATIENT
  Age: 72 Year
  Sex: Female

DRUGS (1)
  1. DIGOXIN [Suspect]
     Indication: ATRIAL FIBRILLATION

REACTIONS (14)
  - TOXICITY TO VARIOUS AGENTS [None]
  - ASTHENIA [None]
  - RENAL FAILURE [None]
  - NODAL RHYTHM [None]
  - ACUTE MYELOID LEUKAEMIA [None]
  - SYNCOPE [None]
  - PRESYNCOPE [None]
  - HAEMOGLOBIN DECREASED [None]
  - CARDIOACTIVE DRUG LEVEL INCREASED [None]
  - BRADYCARDIA [None]
  - ANXIETY [None]
  - BLOOD PRESSURE DECREASED [None]
  - MALAISE [None]
  - PALLOR [None]
